FAERS Safety Report 9019849 (Version 2)
Quarter: 2013Q1

REPORT INFORMATION
  Report Type: Spontaneous
  Country: GR (occurrence: GR)
  Receive Date: 20130118
  Receipt Date: 20130129
  Transmission Date: 20140127
  Serious: Yes (Other)
  Sender: FDA-Public Use
  Company Number: GR-TEVA-380290ISR

PATIENT
  Age: 7 Year
  Sex: Male

DRUGS (10)
  1. METHOTREXATE [Suspect]
     Indication: OPTIC GLIOMA
     Route: 042
  2. CISPLATIN [Suspect]
     Indication: OPTIC GLIOMA
     Route: 042
  3. CARBOPLATIN [Suspect]
     Indication: OPTIC GLIOMA
     Route: 042
  4. VINCRISTINE [Suspect]
     Indication: OPTIC GLIOMA
     Route: 042
  5. ONCOVIN [Suspect]
     Indication: OPTIC GLIOMA
     Route: 042
  6. ENDOXAN [Suspect]
     Indication: OPTIC GLIOMA
     Route: 042
  7. TEMOZOLOMIDE [Suspect]
     Indication: OPTIC GLIOMA
     Route: 048
  8. TEMOZOLOMIDE [Suspect]
     Route: 048
  9. PREDNISOLONE [Suspect]
     Indication: OPTIC GLIOMA
     Route: 048
  10. PREDNISOLONE [Suspect]
     Route: 048

REACTIONS (2)
  - Tooth hypoplasia [Unknown]
  - Stomatitis [Unknown]
